FAERS Safety Report 5733183-1 (Version None)
Quarter: 2008Q2

REPORT INFORMATION
  Report Type: 
  Country: None (occurrence: None)
  Receive Date: 20080507
  Receipt Date: 20080422
  Transmission Date: 20081010
  Serious: Yes (Hospitalization)
  Sender: FDA-Public Use
  Company Number: DSA_31667_2008

PATIENT
  Sex: Female

DRUGS (3)
  1. LORAZEPAM [Suspect]
     Dosage: (2 DF 1X  NOT THE PRESCRIBED AMOUNT. ORAL)
     Route: 048
     Dates: start: 20080328, end: 20080328
  2. DICLOFENAC SODIUM [Suspect]
     Dosage: (500 MG 1X NOT THE PRESCRIBED AMOUNT. ORAL)
     Route: 048
     Dates: start: 20080328, end: 20080328
  3. ETHANOL (ALCOHOL - ETHANOL) [Suspect]
     Dosage: (ORAL)
     Route: 048
     Dates: start: 20080328, end: 20080328

REACTIONS (4)
  - ALCOHOL USE [None]
  - BLOOD POTASSIUM DECREASED [None]
  - MULTIPLE DRUG OVERDOSE INTENTIONAL [None]
  - SUICIDE ATTEMPT [None]
